FAERS Safety Report 18138592 (Version 1)
Quarter: 2020Q3

REPORT INFORMATION
  Report Type: Spontaneous
  Country: US (occurrence: US)
  Receive Date: 20200811
  Receipt Date: 20200811
  Transmission Date: 20201103
  Serious: Yes (Hospitalization)
  Sender: FDA-Public Use
  Company Number: None

PATIENT
  Sex: Female

DRUGS (1)
  1. RYDAPT [Suspect]
     Active Substance: MIDOSTAURIN
     Indication: THROMBOCYTOPENIA
     Dosage: ?          OTHER FREQUENCY:2X DAILY DAY 8?21;?
     Route: 048
     Dates: start: 20200708

REACTIONS (3)
  - Pyrexia [None]
  - Bone pain [None]
  - Pain [None]
